FAERS Safety Report 13192432 (Version 2)
Quarter: 2017Q1

REPORT INFORMATION
  Report Type: Spontaneous
  Country: JP (occurrence: JP)
  Receive Date: 20170207
  Receipt Date: 20170214
  Transmission Date: 20170428
  Serious: Yes (Other)
  Sender: FDA-Public Use
  Company Number: JP-ASTELLAS-2017JP001969AA

PATIENT
  Age: 61 Year
  Sex: Male

DRUGS (8)
  1. ZOLEDRONIC ACID [Concomitant]
     Active Substance: ZOLEDRONIC ACID
     Indication: HORMONE-REFRACTORY PROSTATE CANCER
     Dosage: UNK UNK, UNKNOWN FREQ.
     Route: 065
  2. STRONTIUM [Concomitant]
     Active Substance: STRONTIUM
     Indication: METASTASES TO SPINE
     Dosage: UNK UNK, UNKNOWN FREQ.
     Route: 065
     Dates: start: 2014
  3. BICALUTAMIDE. [Concomitant]
     Active Substance: BICALUTAMIDE
     Indication: HORMONE-REFRACTORY PROSTATE CANCER
     Dosage: UNK UNK, UNKNOWN FREQ.
     Route: 065
  4. FLUTAMIDE. [Concomitant]
     Active Substance: FLUTAMIDE
     Indication: HORMONE-REFRACTORY PROSTATE CANCER
     Dosage: UNK UNK, UNKNOWN FREQ.
     Route: 065
  5. ESTRAMUSTIN [Concomitant]
     Active Substance: ESTRAMUSTINE PHOSPHATE SODIUM
     Indication: HORMONE-REFRACTORY PROSTATE CANCER
     Dosage: UNK UNK, UNKNOWN FREQ.
     Route: 065
  6. XTANDI [Suspect]
     Active Substance: ENZALUTAMIDE
     Indication: HORMONE-REFRACTORY PROSTATE CANCER
     Route: 065
     Dates: start: 201412, end: 201508
  7. DEXAMETHASONE. [Concomitant]
     Active Substance: DEXAMETHASONE
     Indication: HORMONE-REFRACTORY PROSTATE CANCER
     Dosage: UNK UNK, UNKNOWN FREQ.
     Route: 065
  8. ESTRAMUSTIN [Concomitant]
     Active Substance: ESTRAMUSTINE PHOSPHATE SODIUM
     Dosage: UNK UNK, UNKNOWN FREQ.
     Route: 065
     Dates: start: 201310

REACTIONS (1)
  - Anaemia [Recovering/Resolving]

NARRATIVE: CASE EVENT DATE: 201508
